FAERS Safety Report 14754528 (Version 2)
Quarter: 2019Q1

REPORT INFORMATION
  Report Type: Spontaneous
  Country: US (occurrence: US)
  Receive Date: 20180413
  Receipt Date: 20190307
  Transmission Date: 20190417
  Serious: Yes (Death, Hospitalization, Other)
  Sender: FDA-Public Use
  Company Number: US-ASTRAZENECA-2018SE43871

PATIENT
  Age: 31341 Day
  Sex: Female
  Weight: 137 kg

DRUGS (22)
  1. COUMADIN [Concomitant]
     Active Substance: WARFARIN SODIUM
  2. LIPITOR [Concomitant]
     Active Substance: ATORVASTATIN CALCIUM
     Route: 048
  3. ONGLYZA [Suspect]
     Active Substance: SAXAGLIPTIN HYDROCHLORIDE
     Indication: DIABETES MELLITUS
     Dosage: 2.5MG UNKNOWN
     Route: 048
     Dates: start: 20100412
  4. ASPIRIN. [Concomitant]
     Active Substance: ASPIRIN
  5. XARELTO [Concomitant]
     Active Substance: RIVAROXABAN
     Route: 048
  6. PRAVASTATIN. [Concomitant]
     Active Substance: PRAVASTATIN
     Route: 048
  7. LISINOPRIL. [Concomitant]
     Active Substance: LISINOPRIL
     Dosage: 10/12.5MG DAILY
     Route: 048
     Dates: start: 20100219
  8. DIGOXIN. [Concomitant]
     Active Substance: DIGOXIN
     Route: 048
     Dates: start: 20100211
  9. PROTONIX [Concomitant]
     Active Substance: PANTOPRAZOLE SODIUM
  10. KOMBIGLYZE XR [Suspect]
     Active Substance: METFORMIN HYDROCHLORIDE\SAXAGLIPTIN HYDROCHLORIDE
     Route: 048
     Dates: start: 20100512, end: 20161006
  11. ZOCOR [Concomitant]
     Active Substance: SIMVASTATIN
     Route: 048
  12. ONGLYZA [Suspect]
     Active Substance: SAXAGLIPTIN HYDROCHLORIDE
     Indication: DIABETES MELLITUS
     Dosage: UNKNOWN
     Route: 048
     Dates: start: 20100512, end: 20161006
  13. ONGLYZA [Suspect]
     Active Substance: SAXAGLIPTIN HYDROCHLORIDE
     Indication: DIABETES MELLITUS
     Dosage: 2.5MG UNKNOWN
     Route: 048
     Dates: start: 20101013, end: 20160906
  14. ATENOLOL. [Concomitant]
     Active Substance: ATENOLOL
     Route: 048
     Dates: start: 20100221
  15. HYDROCHLOROTHIAZIDE. [Concomitant]
     Active Substance: HYDROCHLOROTHIAZIDE
  16. FUROSEMIDE. [Concomitant]
     Active Substance: FUROSEMIDE
     Dates: start: 20100226
  17. SIMVASTATIN. [Concomitant]
     Active Substance: SIMVASTATIN
  18. PANTOPRAZOLE [Concomitant]
     Active Substance: PANTOPRAZOLE
     Dosage: 40.0MG UNKNOWN
     Route: 048
     Dates: start: 20100101
  19. AMARYL [Concomitant]
     Active Substance: GLIMEPIRIDE
     Route: 048
     Dates: start: 20100211
  20. LASIX [Concomitant]
     Active Substance: FUROSEMIDE
     Route: 048
  21. HYDRALAZINE [Concomitant]
     Active Substance: HYDRALAZINE HYDROCHLORIDE
     Route: 048
  22. DILTIAZEM. [Concomitant]
     Active Substance: DILTIAZEM
     Route: 048

REACTIONS (6)
  - Renal failure [Unknown]
  - Cardiac failure [Fatal]
  - Acute kidney injury [Unknown]
  - Cardiac failure congestive [Unknown]
  - Chronic kidney disease [Unknown]
  - Nephrogenic anaemia [Unknown]

NARRATIVE: CASE EVENT DATE: 20120604
